FAERS Safety Report 4334351-6 (Version None)
Quarter: 2004Q2

REPORT INFORMATION
  Report Type: 
  Country: None (occurrence: None)
  Receive Date: 20040405
  Receipt Date: 20040315
  Transmission Date: 20050107
  Serious: No
  Sender: FDA-Public Use
  Company Number: 7675

PATIENT
  Age: 25 Year
  Sex: Female

DRUGS (3)
  1. METHOTREXATE [Suspect]
     Indication: EWING'S SARCOMA
     Dosage: 60 MG/M2 PER_CYCLE
  2. IFOSFAMIDE [Suspect]
     Indication: EWING'S SARCOMA
     Dosage: 9 G/M2 PER_CYCLE
  3. ETOPOSIDE [Suspect]
     Indication: EWING'S SARCOMA
     Dosage: 180 MG/M2 PER_CYCLE

REACTIONS (16)
  - ANOREXIA [None]
  - BLOOD CHLORIDE INCREASED [None]
  - BLOOD CREATININE INCREASED [None]
  - BLOOD GLUCOSE INCREASED [None]
  - BLOOD POTASSIUM DECREASED [None]
  - BLOOD SODIUM INCREASED [None]
  - BLOOD UREA INCREASED [None]
  - C-REACTIVE PROTEIN INCREASED [None]
  - DIABETIC HYPEROSMOLAR COMA [None]
  - DISSEMINATED INTRAVASCULAR COAGULATION [None]
  - FUNGAL INFECTION [None]
  - HAEMOGLOBIN DECREASED [None]
  - IMMUNOSUPPRESSION [None]
  - PLATELET COUNT DECREASED [None]
  - PNEUMONIA [None]
  - WHITE BLOOD CELL COUNT DECREASED [None]
